FAERS Safety Report 5024790-2 (Version None)
Quarter: 2006Q2

REPORT INFORMATION
  Report Type: 
  Country: None (occurrence: None)
  Receive Date: 20060426
  Receipt Date: 20060214
  Transmission Date: 20061013
  Serious: Yes (Other)
  Sender: FDA-Public Use
  Company Number: 2006023047

PATIENT
  Age: 56 Year
  Sex: Female

DRUGS (4)
  1. LYRICA [Suspect]
     Indication: ARTHRALGIA
     Dosage: 150 MG (75 MG, 2 IN 1 D), ORAL
     Route: 048
     Dates: start: 20060213, end: 20060213
  2. NORCO [Suspect]
     Indication: ILL-DEFINED DISORDER
  3. VALIUM [Suspect]
     Indication: ILL-DEFINED DISORDER
  4. SOMA [Suspect]
     Indication: ILL-DEFINED DISORDER

REACTIONS (5)
  - DRUG INEFFECTIVE [None]
  - DRUG INTERACTION [None]
  - FEELING DRUNK [None]
  - GAIT DISTURBANCE [None]
  - SOMNOLENCE [None]
